FAERS Safety Report 12772898 (Version 1)
Quarter: 2016Q3

REPORT INFORMATION
  Report Type: Spontaneous
  Country: US (occurrence: US)
  Receive Date: 20160922
  Receipt Date: 20160922
  Transmission Date: 20161109
  Serious: No
  Sender: FDA-Public Use
  Company Number: US-BIOMARINAP-US-2016-111146

PATIENT
  Sex: Female

DRUGS (1)
  1. KUVAN [Suspect]
     Active Substance: SAPROPTERIN DIHYDROCHLORIDE
     Indication: PHENYLKETONURIA
     Route: 065

REACTIONS (4)
  - Increased viscosity of upper respiratory secretion [Unknown]
  - Seasonal allergy [Unknown]
  - Sinus disorder [Unknown]
  - Throat irritation [Unknown]
